FAERS Safety Report 18924360 (Version 1)
Quarter: 2021Q1

REPORT INFORMATION
  Report Type: Other
  Country: IT (occurrence: IT)
  Receive Date: 20210223
  Receipt Date: 20210223
  Transmission Date: 20210420
  Serious: Yes (Other)
  Sender: FDA-Public Use
  Company Number: IT-CELLTRION INC.-2021IT002092

PATIENT

DRUGS (4)
  1. BENDAMUSTINE [Suspect]
     Active Substance: BENDAMUSTINE
     Dosage: FIFTH CYCLE OF BENDAMUSTINE (90 MG INSTEAD OF 90 MG/M2): START DATE (16/SEP/2020) AND (17/SEP/2020)
     Route: 065
  2. RITUXIMAB (UNKNOWN) [Suspect]
     Active Substance: RITUXIMAB
     Indication: LYMPHOMA
     Dosage: ON 16/APR/2020 AND 17/APR/2020 THE PATIENT RECEIVED THE FOURTH CYCLE OF RITUXIMAB
     Route: 065
  3. POLATUZUMAB VEDOTIN. [Suspect]
     Active Substance: POLATUZUMAB VEDOTIN
     Indication: LYMPHOMA
     Dosage: ON 16/APR/2020 AND 17/APR/2020 THE PATIENT RECEIVED THE FOURTH CYCLE OF POLATUZUMAB VEDOTIN
     Route: 065
  4. BENDAMUSTINE [Suspect]
     Active Substance: BENDAMUSTINE
     Indication: LYMPHOMA
     Dosage: FOURTH CYCLE
     Route: 065

REACTIONS (3)
  - Pancytopenia [Unknown]
  - Mucosal inflammation [Recovered/Resolved]
  - Cytomegalovirus infection reactivation [Unknown]

NARRATIVE: CASE EVENT DATE: 20200507
